FAERS Safety Report 7502681-2 (Version None)
Quarter: 2011Q2

REPORT INFORMATION
  Report Type: 
  Country: None (occurrence: None)
  Receive Date: 20110525
  Receipt Date: 20110512
  Transmission Date: 20111010
  Serious: Yes (Other)
  Sender: FDA-Public Use
  Company Number: PHHY2011US40714

PATIENT
  Sex: Female

DRUGS (1)
  1. GILENYA [Suspect]
     Indication: MULTIPLE SCLEROSIS
     Dosage: 0.5 MG, QD
     Route: 048
     Dates: start: 20110511, end: 20110512

REACTIONS (4)
  - BLOOD PRESSURE DECREASED [None]
  - CHEST PAIN [None]
  - HEART RATE DECREASED [None]
  - DYSPEPSIA [None]
